FAERS Safety Report 14830108 (Version 1)
Quarter: 2018Q2

REPORT INFORMATION
  Report Type: Report from Study
  Country: US (occurrence: US)
  Receive Date: 20180430
  Receipt Date: 20180430
  Transmission Date: 20180711
  Serious: No
  Sender: FDA-Public Use
  Company Number: PHEH2018US016612

PATIENT
  Sex: Female
  Weight: 65.31 kg

DRUGS (1)
  1. COSENTYX [Suspect]
     Active Substance: SECUKINUMAB
     Indication: PSORIASIS
     Dosage: 300 MG, AT DAY 28 THEN EVERY 4 WEEKS
     Route: 058

REACTIONS (2)
  - Hair growth abnormal [Unknown]
  - Inappropriate schedule of drug administration [Unknown]
